FAERS Safety Report 8003775-8 (Version None)
Quarter: 2011Q4

REPORT INFORMATION
  Report Type: 
  Country: None (occurrence: None)
  Receive Date: 20111222
  Receipt Date: 20111216
  Transmission Date: 20120403
  Serious: Yes (Hospitalization)
  Sender: FDA-Public Use
  Company Number: NL-US-EMD SERONO, INC.-7102274

PATIENT
  Sex: Female
  Weight: 90 kg

DRUGS (5)
  1. DICLOFENAC SODIUM [Concomitant]
     Indication: PAIN
     Route: 048
     Dates: start: 20111006, end: 20111027
  2. ACETAMINOPHEN [Concomitant]
     Indication: PROPHYLAXIS
     Route: 048
     Dates: start: 20110615
  3. OMEPRAZOLE [Concomitant]
     Indication: PROPHYLAXIS
     Route: 048
     Dates: start: 20111006, end: 20111027
  4. AMLODIPINE [Concomitant]
     Indication: HYPERTENSION
     Route: 048
     Dates: start: 20100101
  5. REBIF [Suspect]
     Indication: MULTIPLE SCLEROSIS
     Route: 058
     Dates: start: 20110615

REACTIONS (3)
  - INJECTION SITE ERYTHEMA [None]
  - APPENDICITIS [None]
  - MYALGIA [None]
